FAERS Safety Report 23891024 (Version 1)
Quarter: 2024Q2

REPORT INFORMATION
  Report Type: Other
  Country: IN (occurrence: IN)
  Receive Date: 20240523
  Receipt Date: 20240523
  Transmission Date: 20240715
  Serious: Yes (Other)
  Sender: FDA-Public Use
  Company Number: IN-Breckenridge Pharmaceutical, Inc.-2157370

PATIENT
  Age: 52 Year
  Sex: Female

DRUGS (1)
  1. ARIPIPRAZOLE [Suspect]
     Active Substance: ARIPIPRAZOLE
     Indication: Schizophrenia
     Route: 048

REACTIONS (2)
  - Angle closure glaucoma [Recovered/Resolved]
  - Eye pain [Recovered/Resolved]
